FAERS Safety Report 6523676-1 (Version None)
Quarter: 2009Q4

REPORT INFORMATION
  Report Type: 
  Country: None (occurrence: None)
  Receive Date: 20091231
  Receipt Date: 20091223
  Transmission Date: 20100525
  Serious: Yes (Other)
  Sender: FDA-Public Use
  Company Number: JP-ABBOTT-09P-087-0616203-00

PATIENT
  Age: 68 Year
  Sex: Female

DRUGS (4)
  1. CLARITH TAB [Suspect]
     Indication: DRUG USE FOR UNKNOWN INDICATION
     Dates: start: 20090401, end: 20090401
  2. UNSPECIFIED MEDICATION [Suspect]
     Indication: DRUG USE FOR UNKNOWN INDICATION
  3. UNSPECIFIED MEDICATION [Suspect]
  4. UNSPECIFIED MEDICATION [Suspect]

REACTIONS (1)
  - DRUG ERUPTION [None]
